FAERS Safety Report 5332885-9 (Version None)
Quarter: 2007Q2

REPORT INFORMATION
  Report Type: 
  Country: None (occurrence: None)
  Receive Date: 20070521
  Receipt Date: 20070509
  Transmission Date: 20071010
  Serious: Yes (Hospitalization)
  Sender: FDA-Public Use
  Company Number: 2007AL001899

PATIENT
  Age: 22 Year
  Sex: Female

DRUGS (1)
  1. PROPYLTHIOURACIL TAB [Suspect]
     Indication: BASEDOW'S DISEASE
     Dosage: 100 MG; BID

REACTIONS (12)
  - ABDOMINAL PAIN LOWER [None]
  - ANTI-NEUTROPHIL CYTOPLASMIC ANTIBODY POSITIVE VASCULITIS [None]
  - ARTHRALGIA [None]
  - ARTHRITIS [None]
  - BODY TEMPERATURE INCREASED [None]
  - DIARRHOEA [None]
  - EPISCLERITIS [None]
  - GOITRE [None]
  - MALAISE [None]
  - MYALGIA [None]
  - PYREXIA [None]
  - TONGUE ULCERATION [None]
